FAERS Safety Report 11662848 (Version 1)
Quarter: 2015Q4

REPORT INFORMATION
  Report Type: Spontaneous
  Country: US (occurrence: None)
  Receive Date: 20151023
  Receipt Date: 20151023
  Transmission Date: 20160304
  Serious: Yes (Other)
  Sender: FDA-Public Use
  Company Number: US2015146603

PATIENT
  Age: 64 Year
  Sex: Female

DRUGS (2)
  1. CITRUCEL [Suspect]
     Active Substance: METHYLCELLULOSE (4000 MPA.S)
     Indication: PRODUCT USED FOR UNKNOWN INDICATION
  2. POLYETHYLENE GLYCOL [Suspect]
     Active Substance: POLYETHYLENE GLYCOLS
     Indication: PRODUCT USED FOR UNKNOWN INDICATION
     Dosage: UNK, 335 PO
     Route: 048

REACTIONS (12)
  - Immobile [None]
  - Drug interaction [None]
  - Urinary incontinence [None]
  - Pain [None]
  - Back disorder [None]
  - Constipation [None]
  - Muscle spasms [None]
  - Faecal incontinence [None]
  - Musculoskeletal discomfort [None]
  - Gastrointestinal disorder [None]
  - Faeces hard [None]
  - Bladder discomfort [None]
